FAERS Safety Report 17256265 (Version 3)
Quarter: 2020Q1

REPORT INFORMATION
  Report Type: Spontaneous
  Country: IT (occurrence: IT)
  Receive Date: 20200110
  Receipt Date: 20200328
  Transmission Date: 20200409
  Serious: Yes (Other)
  Sender: FDA-Public Use
  Company Number: IT-ACCORD-169185

PATIENT
  Age: 77 Year
  Sex: Female
  Weight: 80 kg

DRUGS (5)
  1. ZOLTRON [Concomitant]
     Active Substance: LETROZOLE
     Indication: BREAST NEOPLASM
     Dosage: STRENGTH: 2.5 MG
     Route: 048
     Dates: start: 20160323, end: 20170313
  2. HERCEPTIN [Concomitant]
     Active Substance: TRASTUZUMAB
     Indication: BREAST CANCER STAGE IV
     Dosage: STRENGTH:600 MG SOLUTION FOR INJECTION IN VIAL
     Route: 058
     Dates: start: 20160323
  3. ZOLEDRONIC ACID [Suspect]
     Active Substance: ZOLEDRONIC ACID
     Indication: METASTASES TO BONE
     Dosage: 3 MG/ 4 MG EACH 28 DAYS
     Route: 042
     Dates: start: 20160505, end: 20171218
  4. PLAUNAZIDE [Concomitant]
     Active Substance: HYDROCHLOROTHIAZIDE\OLMESARTAN MEDOXOMIL
     Indication: HYPERTENSION
     Dosage: STRENGTH:20 MG / 25 MG
     Route: 048
  5. GLUCOBAY [Concomitant]
     Active Substance: ACARBOSE
     Indication: DIABETES MELLITUS

REACTIONS (5)
  - Pain [Recovering/Resolving]
  - Spinal pain [Recovering/Resolving]
  - Renal impairment [Recovering/Resolving]
  - Blood creatinine increased [Not Recovered/Not Resolved]
  - Hypocalcaemia [Recovering/Resolving]

NARRATIVE: CASE EVENT DATE: 20171012
